FAERS Safety Report 18223531 (Version 1)
Quarter: 2020Q3

REPORT INFORMATION
  Report Type: Spontaneous
  Country: AU (occurrence: AU)
  Receive Date: 20200902
  Receipt Date: 20200902
  Transmission Date: 20201103
  Serious: Yes (Other)
  Sender: FDA-Public Use
  Company Number: AU-PFIZER INC-2020304845

PATIENT
  Age: 76 Year
  Sex: Male

DRUGS (2)
  1. DBL VANCOMYCIN [Suspect]
     Active Substance: VANCOMYCIN HYDROCHLORIDE
     Indication: DIABETIC FOOT INFECTION
     Dosage: 2 G Q24H
     Route: 042
     Dates: start: 20200716, end: 20200730
  2. CIPROFLOXACIN SANDOZ [CIPROFLOXACIN HYDROCHLORIDE] [Concomitant]
     Indication: DIABETIC FOOT INFECTION
     Dosage: 750 MG, 2X/DAY
     Route: 048
     Dates: start: 20200528

REACTIONS (4)
  - Off label use [Unknown]
  - Renal impairment [Recovered/Resolved with Sequelae]
  - Drug level increased [Unknown]
  - Nephropathy toxic [Recovered/Resolved with Sequelae]

NARRATIVE: CASE EVENT DATE: 20200716
